FAERS Safety Report 6680893-8 (Version None)
Quarter: 2010Q2

REPORT INFORMATION
  Report Type: 
  Country: None (occurrence: None)
  Receive Date: 20100414
  Receipt Date: 20100310
  Transmission Date: 20101027
  Serious: Yes (Death, Hospitalization)
  Sender: FDA-Public Use
  Company Number: BY-CELGENEUS-209-C5013-09061033

PATIENT
  Sex: Female
  Weight: 70 kg

DRUGS (4)
  1. CC-5013\PLACEBO [Suspect]
     Indication: MULTIPLE MYELOMA
     Route: 048
     Dates: start: 20071024
  2. CC-5013 [Suspect]
     Indication: MULTIPLE MYELOMA
     Route: 048
     Dates: start: 20090520, end: 20090609
  3. MELPHALAN HYDROCHLORIDE [Suspect]
     Indication: MULTIPLE MYELOMA
     Route: 048
     Dates: start: 20071024, end: 20080622
  4. PREDNISONE [Suspect]
     Indication: MULTIPLE MYELOMA
     Route: 048
     Dates: start: 20071024, end: 20080622

REACTIONS (2)
  - DIABETES MELLITUS [None]
  - PNEUMONIA [None]
